FAERS Safety Report 23034586 (Version 2)
Quarter: 2023Q4

REPORT INFORMATION
  Report Type: Spontaneous
  Country: LB (occurrence: LB)
  Receive Date: 20231005
  Receipt Date: 20231207
  Transmission Date: 20240110
  Serious: Yes (Other)
  Sender: FDA-Public Use
  Company Number: LB-ALXN-A202312837

PATIENT
  Age: 13 Year
  Sex: Male

DRUGS (1)
  1. SOLIRIS [Suspect]
     Active Substance: ECULIZUMAB
     Indication: Atypical haemolytic uraemic syndrome
     Dosage: 300 MG, QW AT 4-WEEK INTERVAL
     Route: 042

REACTIONS (3)
  - Septic shock [Recovering/Resolving]
  - Product contamination microbial [Unknown]
  - Counterfeit product administered [Unknown]
